FAERS Safety Report 9768998 (Version 1)
Quarter: 2013Q3

REPORT INFORMATION
  Report Type: Spontaneous
  Country: US (occurrence: None)
  Receive Date: 20130830
  Receipt Date: 20130830
  Transmission Date: 20140515
  Serious: Yes (Other)
  Sender: FDA-Public Use
  Company Number: 54973 AE # 1122

PATIENT
  Age: 70 Year
  Sex: Female

DRUGS (1)
  1. HYLAND^S LEG CRAMPS TABLETS [Suspect]
     Indication: PAIN IN EXTREMITY

REACTIONS (7)
  - Pharyngeal oedema [None]
  - Oropharyngeal pain [None]
  - Ear swelling [None]
  - Swelling face [None]
  - Swollen tongue [None]
  - Oedema mouth [None]
  - Rash macular [None]
